FAERS Safety Report 7481181-2 (Version None)
Quarter: 2011Q2

REPORT INFORMATION
  Report Type: 
  Country: None (occurrence: None)
  Receive Date: 20110512
  Receipt Date: 20110512
  Transmission Date: 20111010
  Serious: Yes (Other)
  Sender: FDA-Public Use
  Company Number: None

PATIENT
  Age: 47 Year
  Sex: Male
  Weight: 90.7194 kg

DRUGS (1)
  1. ABILIFY [Suspect]
     Indication: SCHIZOPHRENIA, PARANOID TYPE
     Dosage: 15 MILLIGRAMS 1 TABLET ONCE A DAY
     Dates: start: 20060101, end: 20110101

REACTIONS (3)
  - DIABETES MELLITUS [None]
  - BLOOD CHOLESTEROL INCREASED [None]
  - CARDIAC DISORDER [None]
